FAERS Safety Report 4349467-8 (Version None)
Quarter: 2004Q2

REPORT INFORMATION
  Report Type: 
  Country: None (occurrence: None)
  Receive Date: 20040426
  Receipt Date: 20040412
  Transmission Date: 20050107
  Serious: Yes (Other)
  Sender: FDA-Public Use
  Company Number: 2004008940

PATIENT
  Age: 55 Year
  Sex: Female
  Weight: 95 kg

DRUGS (2)
  1. ZIPRASIDONE (CAPS) (ZIPRASIDONE) [Suspect]
     Indication: BIPOLAR DISORDER
     Dosage: 40 MG (BID), ORAL
     Route: 048
     Dates: start: 20031020, end: 20040317
  2. SERTRALINE (SERTRALINE) (SERTRALINE) [Suspect]
     Indication: MAJOR DEPRESSION
     Dosage: 100 MG (DAILY), ORAL
     Route: 048
     Dates: start: 19940301

REACTIONS (4)
  - BIPOLAR DISORDER [None]
  - GAMMA-GLUTAMYLTRANSFERASE INCREASED [None]
  - HEPATITIS C [None]
  - PLATELET COUNT DECREASED [None]
